FAERS Safety Report 18277149 (Version 1)
Quarter: 2020Q3

REPORT INFORMATION
  Report Type: Spontaneous
  Country: US (occurrence: US)
  Receive Date: 20200917
  Receipt Date: 20200917
  Transmission Date: 20201103
  Serious: No
  Sender: FDA-Public Use
  Company Number: US-ALLERGAN-1939371US

PATIENT
  Age: 39 Year
  Sex: Female
  Weight: 89.54 kg

DRUGS (1)
  1. SUCRALFATE ? BP [Suspect]
     Active Substance: SUCRALFATE
     Indication: HEPATIC CIRRHOSIS
     Dosage: 1 MG, TID
     Route: 048

REACTIONS (4)
  - Off label use [Unknown]
  - Product solubility abnormal [Unknown]
  - Choking [Unknown]
  - Product taste abnormal [Unknown]

NARRATIVE: CASE EVENT DATE: 20190919
